FAERS Safety Report 4439910-8 (Version None)
Quarter: 2004Q3

REPORT INFORMATION
  Report Type: 
  Country: None (occurrence: None)
  Receive Date: 20040831
  Receipt Date: 20040816
  Transmission Date: 20050211
  Serious: Yes (Disabling)
  Sender: FDA-Public Use
  Company Number: CIP04001781

PATIENT
  Age: 88 Year
  Sex: Female

DRUGS (4)
  1. BENE(RISEDRONATE SODIUM) TABLET, 2.5MG [Suspect]
     Indication: OSTEOPOROSIS
     Dosage: 2.5 MG DAILY, ORAL
     Route: 048
     Dates: start: 20031017, end: 20040805
  2. AMOBAN (ZOPICLONE) [Concomitant]
  3. ROCALTROL [Concomitant]
  4. CALCIUM LACTATE (CALCIUM LACTATE) [Concomitant]

REACTIONS (12)
  - ARTHRALGIA [None]
  - BLOOD ALKALINE PHOSPHATASE INCREASED [None]
  - BLOOD UREA INCREASED [None]
  - C-REACTIVE PROTEIN INCREASED [None]
  - DIFFICULTY IN WALKING [None]
  - FEMUR FRACTURE [None]
  - FOOT DEFORMITY [None]
  - FRACTURE NONUNION [None]
  - OEDEMA PERIPHERAL [None]
  - OSTEOSCLEROSIS [None]
  - POST PROCEDURAL COMPLICATION [None]
  - STRESS FRACTURE [None]
